FAERS Safety Report 17562477 (Version 2)
Quarter: 2020Q4

REPORT INFORMATION
  Report Type: Report from Study
  Country: US (occurrence: US)
  Receive Date: 20200319
  Receipt Date: 20201106
  Transmission Date: 20210113
  Serious: Yes (Other)
  Sender: FDA-Public Use
  Company Number: NVSC2020US078192

PATIENT
  Age: 18 Year
  Sex: Male

DRUGS (3)
  1. KYMRIAH [Suspect]
     Active Substance: TISAGENLECLEUCEL
     Indication: LYMPHOCYTIC LEUKAEMIA
     Dosage: UNK
     Route: 042
     Dates: start: 20190128
  2. FLUDARABINE [Concomitant]
     Active Substance: FLUDARABINE PHOSPHATE
     Indication: CHEMOTHERAPY
     Dosage: UNK
     Route: 065
  3. CYCLOPHOSPHAMIDE. [Concomitant]
     Active Substance: CYCLOPHOSPHAMIDE
     Indication: CHEMOTHERAPY
     Dosage: UNK
     Route: 065

REACTIONS (9)
  - Agitation [Unknown]
  - Neurotoxicity [Recovered/Resolved]
  - Depression [Unknown]
  - Hypogammaglobulinaemia [Unknown]
  - Confusional state [Unknown]
  - Anger [Unknown]
  - Paraesthesia [Unknown]
  - Respiratory syncytial virus infection [Unknown]
  - Lymphocyte count decreased [Unknown]
